FAERS Safety Report 7091732-8 (Version None)
Quarter: 2010Q4

REPORT INFORMATION
  Report Type: 
  Country: None (occurrence: None)
  Receive Date: 20101109
  Receipt Date: 20101005
  Transmission Date: 20110411
  Serious: Yes (Life-Threatening, Hospitalization)
  Sender: FDA-Public Use
  Company Number: PHHO2010IT15204

PATIENT
  Sex: Male
  Weight: 83.5 kg

DRUGS (6)
  1. BENAZEPRIL HYDROCHLORIDE [Suspect]
     Indication: HYPERTENSION
     Dosage: 20 MG, DAILY
     Route: 048
     Dates: start: 20080917, end: 20100401
  2. BENAZEPRIL HYDROCHLORIDE [Suspect]
     Dosage: NO TREATMENT
     Dates: start: 20100402, end: 20101003
  3. BENAZEPRIL HYDROCHLORIDE [Suspect]
     Dosage: 10 MG, BID
     Route: 048
     Dates: start: 20101004
  4. HUMALOG [Concomitant]
     Indication: DIABETES MELLITUS
     Dosage: 39 IU
     Route: 058
     Dates: start: 20090610, end: 20100402
  5. LANTUS [Concomitant]
     Indication: DIABETES MELLITUS
     Dosage: UNK
     Route: 058
     Dates: start: 20081105, end: 20100402
  6. ESIDRIX [Concomitant]
     Indication: HYPERTENSION
     Dosage: UNK
     Dates: start: 20080917, end: 20100401

REACTIONS (6)
  - ACUTE MYOCARDIAL INFARCTION [None]
  - ANGIOPLASTY [None]
  - CHEST PAIN [None]
  - CORONARY ARTERIAL STENT INSERTION [None]
  - CORONARY ARTERY DISEASE [None]
  - CORONARY ARTERY STENOSIS [None]
